FAERS Safety Report 8356420-6 (Version None)
Quarter: 2012Q2

REPORT INFORMATION
  Report Type: 
  Country: None (occurrence: None)
  Receive Date: 20120514
  Receipt Date: 20120501
  Transmission Date: 20120825
  Serious: Yes (Hospitalization)
  Sender: FDA-Public Use
  Company Number: US-DX529-2012DX000084

PATIENT
  Age: 32 Year
  Sex: Male
  Weight: 108.86 kg

DRUGS (6)
  1. GLEEVEC [Concomitant]
     Indication: CHRONIC MYELOID LEUKAEMIA
  2. KALBITOR [Suspect]
     Indication: HEREDITARY ANGIOEDEMA
     Route: 058
     Dates: start: 20120304, end: 20120304
  3. CINRYZE [Suspect]
     Indication: HEREDITARY ANGIOEDEMA
     Dosage: DOSE UNIT:1000 UNITS
     Route: 042
     Dates: start: 20120331, end: 20120331
  4. FIRAZYR [Concomitant]
     Route: 058
     Dates: start: 20120401, end: 20120401
  5. FIRAZYR [Concomitant]
     Route: 058
     Dates: start: 20111001
  6. FIRAZYR [Concomitant]
     Indication: HEREDITARY ANGIOEDEMA
     Route: 058
     Dates: start: 20120327, end: 20120327

REACTIONS (3)
  - DYSPNOEA [None]
  - CHEST PAIN [None]
  - PANCREATITIS [None]
